FAERS Safety Report 20851682 (Version 2)
Quarter: 2022Q2

REPORT INFORMATION
  Report Type: Spontaneous
  Country: FR (occurrence: FR)
  Receive Date: 20220520
  Receipt Date: 20220611
  Transmission Date: 20220721
  Serious: Yes (Hospitalization)
  Sender: FDA-Public Use
  Company Number: None

PATIENT
  Age: 75 Year
  Sex: Male

DRUGS (4)
  1. FUROSEMIDE [Suspect]
     Active Substance: FUROSEMIDE
     Indication: Congestive cardiomyopathy
     Route: 048
     Dates: start: 20220305
  2. AMIODARONE [Suspect]
     Active Substance: AMIODARONE
     Indication: Congestive cardiomyopathy
     Route: 048
     Dates: start: 20220303
  3. LANSOPRAZOLE [Suspect]
     Active Substance: LANSOPRAZOLE
     Indication: Prophylaxis
     Route: 048
     Dates: start: 20220223
  4. RAMIPRIL [Suspect]
     Active Substance: RAMIPRIL
     Indication: Congestive cardiomyopathy
     Route: 048
     Dates: start: 20220308

REACTIONS (1)
  - Agranulocytosis [Not Recovered/Not Resolved]

NARRATIVE: CASE EVENT DATE: 20220411
